FAERS Safety Report 7187123-1 (Version None)
Quarter: 2010Q4

REPORT INFORMATION
  Report Type: 
  Country: None (occurrence: None)
  Receive Date: 20101222
  Receipt Date: 20101208
  Transmission Date: 20110411
  Serious: Yes (Death, Hospitalization)
  Sender: FDA-Public Use
  Company Number: BE-WATSON-2010-16133

PATIENT
  Age: 33 Year
  Sex: Female
  Weight: 60 kg

DRUGS (6)
  1. DICLOFENAC (WATSON LABORATORIES) [Suspect]
     Indication: PRODUCT USED FOR UNKNOWN INDICATION
     Dosage: 1 G, SINGLE
     Route: 048
  2. COLCHICINE (WATSON LABORATORIES) [Suspect]
     Indication: PRODUCT USED FOR UNKNOWN INDICATION
     Dosage: 20 MG, SINGLE
     Route: 048
  3. FUROSEMIDE (WATSON LABORATORIES) [Suspect]
     Indication: PRODUCT USED FOR UNKNOWN INDICATION
     Dosage: 400 MG, SINGLE
     Route: 048
  4. IBUPROFEN [Suspect]
     Indication: PRODUCT USED FOR UNKNOWN INDICATION
     Dosage: 8 G, SINGLE
     Route: 048
  5. ATORVASTATIN [Suspect]
     Indication: PRODUCT USED FOR UNKNOWN INDICATION
     Dosage: 100 MG, SINGLE
     Route: 048
  6. PROPOFOL [Suspect]
     Indication: MECHANICAL VENTILATION
     Dosage: UP TO 200 MG/HR

REACTIONS (18)
  - ACUTE HEPATIC FAILURE [None]
  - ARRHYTHMIA [None]
  - BRAIN OEDEMA [None]
  - CARDIAC ARREST [None]
  - CONVULSION [None]
  - DRUG INTERACTION [None]
  - ESCHERICHIA BACTERAEMIA [None]
  - GASTROENTERITIS [None]
  - HYPERAMMONAEMIC ENCEPHALOPATHY [None]
  - HYPERTRIGLYCERIDAEMIA [None]
  - HYPOXIA [None]
  - ILEUS [None]
  - MULTIPLE DRUG OVERDOSE [None]
  - PANCYTOPENIA [None]
  - PULMONARY ALVEOLAR HAEMORRHAGE [None]
  - RENAL FAILURE ACUTE [None]
  - RHABDOMYOLYSIS [None]
  - SHOCK HAEMORRHAGIC [None]
